FAERS Safety Report 19124985 (Version 1)
Quarter: 2021Q2

REPORT INFORMATION
  Report Type: Spontaneous
  Country: FR (occurrence: FR)
  Receive Date: 20210413
  Receipt Date: 20210413
  Transmission Date: 20210717
  Serious: Yes (Other)
  Sender: FDA-Public Use
  Company Number: FR-LUPIN PHARMACEUTICALS INC.-2021-04571

PATIENT
  Age: 44 Year
  Sex: Female

DRUGS (4)
  1. RITONAVIR. [Interacting]
     Active Substance: RITONAVIR
     Indication: HIV INFECTION
     Dosage: UNK
     Route: 065
  2. TRIAMCINOLONE ACETONIDE. [Suspect]
     Active Substance: TRIAMCINOLONE ACETONIDE
     Indication: EPICONDYLITIS
     Dosage: UNK,A RIGHT ELBOW PERIARTICULAR INJECTION WITH TRIAMCINOLONE ACETONIDE WAS PERFORMED FOR LATERAL EPI
     Route: 052
  3. DARUNAVIR [Concomitant]
     Active Substance: DARUNAVIR
     Indication: HIV INFECTION
     Dosage: UNK
     Route: 065
  4. EMTRICITABINE/TENOFOVIR DISOPROXIL [Concomitant]
     Active Substance: EMTRICITABINE\TENOFOVIR DISOPROXIL
     Indication: HIV INFECTION
     Dosage: UNK
     Route: 065

REACTIONS (3)
  - Hyperadrenocorticism [Recovered/Resolved]
  - Drug interaction [Unknown]
  - Kaposi^s sarcoma [Recovering/Resolving]
